FAERS Safety Report 16335988 (Version 1)
Quarter: 2019Q2

REPORT INFORMATION
  Report Type: Spontaneous
  Country: US (occurrence: US)
  Receive Date: 20190521
  Receipt Date: 20190521
  Transmission Date: 20190711
  Serious: Yes (Hospitalization)
  Sender: FDA-Public Use
  Company Number: US-IGSA-SR10008065

PATIENT
  Age: 75 Year
  Sex: Female
  Weight: 55 kg

DRUGS (8)
  1. LOSARTAN                           /01121602/ [Concomitant]
     Active Substance: LOSARTAN
  2. AZITHROMYCIN ANHYDROUS. [Concomitant]
     Active Substance: AZITHROMYCIN ANHYDROUS
     Dosage: UNK
     Dates: start: 20190411, end: 20190417
  3. PROLASTIN-C LIQUID [Suspect]
     Active Substance: .ALPHA.1-PROTEINASE INHIBITOR HUMAN
     Indication: ALPHA-1 ANTI-TRYPSIN DEFICIENCY
     Dosage: 3300 MG, Q.WK.
     Route: 042
     Dates: start: 201812
  4. SPIRIVA [Concomitant]
     Active Substance: TIOTROPIUM BROMIDE MONOHYDRATE
  5. ALPRAZOLAM. [Concomitant]
     Active Substance: ALPRAZOLAM
  6. CYCLOBENZAPRINE                    /00428402/ [Concomitant]
     Active Substance: CYCLOBENZAPRINE
  7. METHYLPREDNISOLONE                 /00049602/ [Concomitant]
     Active Substance: METHYLPREDNISOLONE
     Dosage: UNK
     Dates: start: 20190411
  8. SYMBICORT [Concomitant]
     Active Substance: BUDESONIDE\FORMOTEROL FUMARATE DIHYDRATE

REACTIONS (5)
  - Sepsis [Recovering/Resolving]
  - Productive cough [Not Recovered/Not Resolved]
  - Pneumonia [Recovering/Resolving]
  - Tachycardia [Recovering/Resolving]
  - Malaise [Not Recovered/Not Resolved]

NARRATIVE: CASE EVENT DATE: 20181226
